FAERS Safety Report 23310190 (Version 1)
Quarter: 2023Q4

REPORT INFORMATION
  Report Type: Spontaneous
  Country: US (occurrence: US)
  Receive Date: 20231218
  Receipt Date: 20231218
  Transmission Date: 20240109
  Serious: No
  Sender: FDA-Public Use
  Company Number: US-BAUSCH-BL-2023-018214

PATIENT
  Age: 75 Year
  Sex: Female

DRUGS (2)
  1. DILTIAZEM HYDROCHLORIDE [Suspect]
     Active Substance: DILTIAZEM HYDROCHLORIDE
     Indication: Angina pectoris
     Dosage: 8-9 YEAR
     Route: 048
  2. PLAVIX [Concomitant]
     Active Substance: CLOPIDOGREL BISULFATE
     Indication: Product used for unknown indication
     Route: 065

REACTIONS (8)
  - Blood pressure systolic increased [Unknown]
  - Blood pressure increased [Unknown]
  - Muscle tightness [Unknown]
  - Pain in extremity [Unknown]
  - Thirst [Unknown]
  - Headache [Unknown]
  - Dizziness [Unknown]
  - Product quality issue [Unknown]

NARRATIVE: CASE EVENT DATE: 20231207
